FAERS Safety Report 17928600 (Version 1)
Quarter: 2020Q2

REPORT INFORMATION
  Report Type: Spontaneous
  Country: US (occurrence: US)
  Receive Date: 20200622
  Receipt Date: 20200622
  Transmission Date: 20200714
  Serious: Yes (Other)
  Sender: FDA-Public Use
  Company Number: None

PATIENT
  Age: 66 Year
  Sex: Male

DRUGS (1)
  1. DEFINITY [Suspect]
     Active Substance: PERFLUTREN
     Dates: start: 20200530, end: 20200530

REACTIONS (5)
  - Hypertension [None]
  - Cyanosis [None]
  - Hypoxia [None]
  - Back pain [None]
  - Pain [None]

NARRATIVE: CASE EVENT DATE: 20200530
